FAERS Safety Report 12966172 (Version 3)
Quarter: 2018Q3

REPORT INFORMATION
  Report Type: Spontaneous
  Country: US (occurrence: US)
  Receive Date: 20161122
  Receipt Date: 20180718
  Transmission Date: 20181010
  Serious: Yes (Hospitalization, Other)
  Sender: FDA-Public Use
  Company Number: US-PFIZER INC-2016540621

PATIENT
  Age: 29 Year
  Sex: Male

DRUGS (4)
  1. DULOXETINE. [Concomitant]
     Active Substance: DULOXETINE
     Dosage: UNK
  2. BUSPIRONE [Suspect]
     Active Substance: BUSPIRONE HYDROCHLORIDE
     Dosage: UNK
  3. CORICIDIN HBP COUGH AND COLD [Suspect]
     Active Substance: CHLORPHENIRAMINE MALEATE\DEXTROMETHORPHAN HYDROBROMIDE
     Dosage: 32 CAPSULES, UNK
     Route: 048
  4. LURASIDONE [Suspect]
     Active Substance: LURASIDONE
     Dosage: UNK

REACTIONS (5)
  - Psychotic disorder [Recovering/Resolving]
  - Condition aggravated [Recovering/Resolving]
  - Serotonin syndrome [Recovering/Resolving]
  - Toxicity to various agents [Recovering/Resolving]
  - Drug abuse [Recovering/Resolving]
